FAERS Safety Report 5026384-1 (Version None)
Quarter: 2006Q2

REPORT INFORMATION
  Report Type: 
  Country: None (occurrence: None)
  Receive Date: 20060615
  Receipt Date: 20060531
  Transmission Date: 20061013
  Serious: Yes (Hospitalization)
  Sender: FDA-Public Use
  Company Number: PL-AMGEN-UK181260

PATIENT
  Sex: Female

DRUGS (1)
  1. PALIFERMIN [Suspect]
     Indication: RADIATION DYSPHAGIA
     Route: 040
     Dates: start: 20060407

REACTIONS (1)
  - NEUTROPENIA [None]
